FAERS Safety Report 4313400-5 (Version None)
Quarter: 2004Q1

REPORT INFORMATION
  Report Type: 
  Country: None (occurrence: None)
  Receive Date: 20040304
  Receipt Date: 20040226
  Transmission Date: 20041129
  Serious: No
  Sender: FDA-Public Use
  Company Number: 2004UW03511

PATIENT
  Age: 56 Year
  Sex: Male
  Weight: 74.8435 kg

DRUGS (4)
  1. PRILOSEC [Suspect]
     Indication: GASTROOESOPHAGEAL REFLUX DISEASE
     Dosage: 20 MG PO
     Route: 048
     Dates: start: 20000101
  2. GAVISCON [Concomitant]
  3. LESCOL [Concomitant]
  4. ASPIRIN [Concomitant]

REACTIONS (1)
  - BARRETT'S OESOPHAGUS [None]
